FAERS Safety Report 13094969 (Version 2)
Quarter: 2017Q1

REPORT INFORMATION
  Report Type: Spontaneous
  Country: DE (occurrence: DE)
  Receive Date: 20170106
  Receipt Date: 20170222
  Transmission Date: 20170428
  Serious: Yes (Hospitalization, Other)
  Sender: FDA-Public Use
  Company Number: DE-UNITED THERAPEUTICS-UNT-2016-019785

PATIENT
  Sex: Female

DRUGS (1)
  1. REMODULIN [Suspect]
     Active Substance: TREPROSTINIL
     Indication: PRODUCT USED FOR UNKNOWN INDICATION
     Dosage: UNK
     Route: 041
     Dates: start: 20161107

REACTIONS (5)
  - Injection site pain [Recovered/Resolved]
  - Product use issue [Unknown]
  - Haematoma [Unknown]
  - Central venous catheter removal [Not Recovered/Not Resolved]
  - Catheter placement [Unknown]

NARRATIVE: CASE EVENT DATE: 201612
